FAERS Safety Report 8129769-X (Version None)
Quarter: 2011Q4

REPORT INFORMATION
  Report Type: 
  Country: None (occurrence: None)
  Receive Date: 20111227
  Receipt Date: 20111101
  Transmission Date: 20120403
  Serious: No
  Sender: FDA-Public Use
  Company Number: PHEH2011US08528

PATIENT
  Age: 29 Year
  Sex: Female
  Weight: 49.9 kg

DRUGS (5)
  1. MULTIVITAMINS (ASCORBIC ACID, ERGOCALCIFEROL, FOLIC ACID, NICOTINAMIDE [Concomitant]
  2. LEVETIRACETAM (LEVETIRACETAM) TABLET, 500 MG [Concomitant]
  3. DROSPIRENONE (DROSPIRENONE) TABLET [Concomitant]
  4. GILENYA [Suspect]
     Dosage: 0.5 MG, QD, ORAL
     Route: 048
  5. ZOLOFT [Concomitant]

REACTIONS (3)
  - NAUSEA [None]
  - CHEST DISCOMFORT [None]
  - BACK PAIN [None]
